FAERS Safety Report 5608539-8 (Version None)
Quarter: 2008Q1

REPORT INFORMATION
  Report Type: 
  Country: None (occurrence: None)
  Receive Date: 20080130
  Receipt Date: 20080122
  Transmission Date: 20080703
  Serious: Yes (Other)
  Sender: FDA-Public Use
  Company Number: US-PFIZER INC-2008006621

PATIENT

DRUGS (4)
  1. VIRACEPT [Suspect]
     Dosage: DAILY DOSE:2500MG
     Route: 048
     Dates: start: 20070803, end: 20071015
  2. COMBIVIR [Suspect]
     Dosage: TEXT:300/600
     Route: 048
     Dates: start: 20070803, end: 20080103
  3. KALETRA [Suspect]
     Dosage: TEXT:800/200
     Route: 048
     Dates: start: 20071016, end: 20080103
  4. RETROVIR [Suspect]
     Route: 042
     Dates: start: 20080103, end: 20080103

REACTIONS (1)
  - GASTRIC PERFORATION [None]
